FAERS Safety Report 10237457 (Version 2)
Quarter: 2014Q2

REPORT INFORMATION
  Report Type: Spontaneous
  Country: IE (occurrence: IE)
  Receive Date: 20140615
  Receipt Date: 20140615
  Transmission Date: 20141212
  Serious: Yes (Hospitalization)
  Sender: FDA-Public Use
  Company Number: PHFR2013IE006570

PATIENT
  Age: 44 Year
  Sex: Male

DRUGS (5)
  1. CLOZARIL [Suspect]
     Indication: SCHIZOPHRENIA
     Dosage: 300 MG, DAILY
     Route: 048
     Dates: start: 20120821
  2. FLUOXETINE [Concomitant]
     Indication: ANXIETY
     Dosage: 60 MG,DAILY
     Route: 048
  3. OMNEXEL [Concomitant]
     Indication: ATONIC URINARY BLADDER
     Dosage: UNK UKN, UNK
     Route: 048
  4. ATENOLOL [Concomitant]
     Indication: SINUS TACHYCARDIA
     Dosage: 50 MG, DAILY
     Route: 048
  5. KEPRA [Concomitant]
     Indication: EPILEPSY
     Dosage: 500 MG, UNK
     Route: 048

REACTIONS (2)
  - Urinary tract infection [Recovered/Resolved]
  - Schizophrenia [Recovered/Resolved]
